FAERS Safety Report 5530684-6 (Version None)
Quarter: 2007Q4

REPORT INFORMATION
  Report Type: 
  Country: None (occurrence: None)
  Receive Date: 20071130
  Receipt Date: 20071121
  Transmission Date: 20080405
  Serious: Yes (Other)
  Sender: FDA-Public Use
  Company Number: US-ROCHE-518427

PATIENT
  Age: 86 Year
  Sex: Female
  Weight: 53.1 kg

DRUGS (1)
  1. BONIVA [Suspect]
     Indication: OSTEOPOROSIS
     Dosage: NEXT DOSE IS SCHEDULED FOR 07 DECEMBER 2007.
     Route: 042
     Dates: start: 20070816

REACTIONS (1)
  - PAIN IN JAW [None]
